FAERS Safety Report 9005636 (Version 2)
Quarter: 2017Q2

REPORT INFORMATION
  Report Type: Spontaneous
  Country: US (occurrence: US)
  Receive Date: 20130109
  Receipt Date: 20170519
  Transmission Date: 20170830
  Serious: Yes (Other)
  Sender: FDA-Public Use
  Company Number: US-MERCK-1301USA001564

PATIENT
  Age: 32 Year
  Sex: Male

DRUGS (4)
  1. ALLEGRA [Suspect]
     Active Substance: FEXOFENADINE HYDROCHLORIDE
     Indication: ECZEMA
     Dosage: UNK
     Route: 048
  2. NASONEX [Suspect]
     Active Substance: MOMETASONE FUROATE
     Indication: RHINITIS ALLERGIC
     Dosage: 50 UG (MICROGRAM), UNK
     Route: 045
  3. ELIDEL [Suspect]
     Active Substance: PIMECROLIMUS
     Dosage: UNK (ROUTE: SUBCONJUCTIVAL)
     Route: 047
  4. SINGULAIR [Suspect]
     Active Substance: MONTELUKAST SODIUM
     Indication: HYPERSENSITIVITY
     Dosage: 10 MG, QD
     Route: 048

REACTIONS (4)
  - Visual impairment [Unknown]
  - Cataract [Unknown]
  - Night blindness [Unknown]
  - Vision blurred [Unknown]
